FAERS Safety Report 8973597 (Version 1)
Quarter: 2012Q4

REPORT INFORMATION
  Report Type: 
  Country: US (occurrence: US)
  Receive Date: 20121218
  Receipt Date: 20121218
  Transmission Date: 20130627
  Serious: No
  Sender: FDA-Public Use
  Company Number: US-BRISTOL-MYERS SQUIBB COMPANY-16423477

PATIENT
  Age: 50 Year
  Sex: Female
  Weight: 47 kg

DRUGS (1)
  1. ABILIFY [Suspect]
     Indication: MAJOR DEPRESSION
     Dosage: Dose increased to 2mg 5 mg 7.5mg and 10mg

REACTIONS (3)
  - Akathisia [Unknown]
  - Somnolence [Unknown]
  - Pain [Unknown]
